FAERS Safety Report 9037023 (Version 1)
Quarter: 2012Q4

REPORT INFORMATION
  Report Type: Spontaneous
  Country: US (occurrence: None)
  Receive Date: 20121217
  Receipt Date: 20121217
  Transmission Date: 20130627
  Serious: Yes (Hospitalization)
  Sender: FDA-Public Use
  Company Number: 2012034187

PATIENT
  Age: 47 Year
  Sex: Female

DRUGS (5)
  1. PRIVIGEN [Suspect]
     Dosage: 35 g 1x/month, 9 weeks 2 days
     Route: 042
  2. DIPHENHYDRAMINE (DIPHENHYDRAMINE) [Concomitant]
  3. ASA (ACETYSALICYCLIC ACID) [Concomitant]
  4. LHRH (GONADORELIN ACETATE) [Concomitant]
  5. SYNTHROID (LEVOTHYROXINE SODIUM) [Concomitant]

REACTIONS (5)
  - Abdominal pain [None]
  - Nausea [None]
  - Pallor [None]
  - Rash [None]
  - Restlessness [None]
